FAERS Safety Report 18267528 (Version 1)
Quarter: 2020Q3

REPORT INFORMATION
  Report Type: Spontaneous
  Country: DE (occurrence: DE)
  Receive Date: 20200915
  Receipt Date: 20200915
  Transmission Date: 20201103
  Serious: Yes (Hospitalization)
  Sender: FDA-Public Use
  Company Number: DE-JNJFOC-20200907027

PATIENT
  Age: 80 Year
  Sex: Female

DRUGS (12)
  1. HYDROCHLOROTHIAZIDE;RAMIPRIL [Concomitant]
     Active Substance: HYDROCHLOROTHIAZIDE\RAMIPRIL
     Dosage: 25|5 MG, 0.5?0?0?0
  2. TIMOLOL. [Concomitant]
     Active Substance: TIMOLOL
     Dosage: 1?0?1?0
  3. NITROGLYCERIN. [Concomitant]
     Active Substance: NITROGLYCERIN
     Dosage: 04 MG, PRN
     Route: 055
  4. TORASEMID [Concomitant]
     Active Substance: TORSEMIDE
     Dosage: 5 MG, QD
  5. RIVAROXABAN [Suspect]
     Active Substance: RIVAROXABAN
     Indication: PRODUCT USED FOR UNKNOWN INDICATION
     Dosage: 15 MG, BID
     Route: 048
  6. ATORVASTATIN [Concomitant]
     Active Substance: ATORVASTATIN
     Dosage: 40 MG, 0?0?1?0
  7. LEVOTHYROXIN [Concomitant]
     Active Substance: LEVOTHYROXINE
     Dosage: 100 UG, QD
  8. PANTOPRAZOL [PANTOPRAZOLE] [Concomitant]
     Active Substance: PANTOPRAZOLE
     Dosage: 20 MG, QD
  9. COLECALCIFEROL [Concomitant]
     Active Substance: CHOLECALCIFEROL
     Dosage: ONCE PER WEEK
  10. RANOLAZINE. [Concomitant]
     Active Substance: RANOLAZINE
     Dosage: 750 MG, BID
  11. ZOLPIDEM [Concomitant]
     Active Substance: ZOLPIDEM TARTRATE
     Dosage: 10 MG, PRN
  12. ACETYLSALICYLIC ACID [Concomitant]
     Active Substance: ASPIRIN
     Dosage: 100 MG, QD

REACTIONS (7)
  - Inflammation [Unknown]
  - Connective tissue disorder [Unknown]
  - Localised infection [Unknown]
  - Peripheral swelling [Unknown]
  - Skin irritation [Unknown]
  - Musculoskeletal pain [Unknown]
  - Haematoma [Unknown]
